FAERS Safety Report 21058854 (Version 1)
Quarter: 2022Q3

REPORT INFORMATION
  Report Type: Spontaneous
  Country: FR (occurrence: FR)
  Receive Date: 20220708
  Receipt Date: 20220708
  Transmission Date: 20221026
  Serious: No
  Sender: FDA-Public Use
  Company Number: FR-JAZZ-2022-FR-008786

PATIENT

DRUGS (1)
  1. LURBINECTEDIN [Suspect]
     Active Substance: LURBINECTEDIN
     Indication: Product used for unknown indication
     Dosage: FREQUENCY: 4 MILLIGRAM CYCLE 4
     Route: 042

REACTIONS (1)
  - Asthenia [Unknown]
